FAERS Safety Report 9265139 (Version 2)
Quarter: 2013Q2

REPORT INFORMATION
  Report Type: Spontaneous
  Country: US (occurrence: US)
  Receive Date: 20130501
  Receipt Date: 20130521
  Transmission Date: 20140414
  Serious: No
  Sender: FDA-Public Use
  Company Number: US-PFIZER INC-2013131849

PATIENT
  Sex: Female

DRUGS (3)
  1. CALAN SR [Suspect]
     Indication: BLOOD PRESSURE INCREASED
     Dosage: 240 MG, UNK
  2. LEVOXYL [Suspect]
     Dosage: UNK
  3. PREMARIN [Suspect]
     Dosage: UNK

REACTIONS (1)
  - Vomiting [Unknown]
